FAERS Safety Report 11230685 (Version 2)
Quarter: 2015Q3

REPORT INFORMATION
  Report Type: Spontaneous
  Country: JP (occurrence: JP)
  Receive Date: 20150701
  Receipt Date: 20150917
  Transmission Date: 20151125
  Serious: Yes (Other)
  Sender: FDA-Public Use
  Company Number: JP-JNJFOC-20150622261

PATIENT
  Age: 81 Year
  Sex: Male

DRUGS (12)
  1. CANAGLU [Suspect]
     Active Substance: CANAGLIFLOZIN
     Indication: TYPE 2 DIABETES MELLITUS
     Route: 048
     Dates: start: 20141121
  2. GLIMICRON [Concomitant]
     Active Substance: GLICLAZIDE
     Indication: TYPE 2 DIABETES MELLITUS
     Route: 048
     Dates: start: 20131114
  3. NORPACE [Concomitant]
     Active Substance: DISOPYRAMIDE PHOSPHATE
     Route: 048
     Dates: start: 20130809
  4. LANIRAPID [Concomitant]
     Active Substance: METILDIGOXIN
     Route: 048
     Dates: start: 20130809
  5. TENELIA [Concomitant]
     Active Substance: CITALOPRAM HYDROBROMIDE
     Indication: TYPE 2 DIABETES MELLITUS
     Route: 048
     Dates: start: 20140313
  6. WARFARIN [Concomitant]
     Active Substance: WARFARIN
     Route: 048
     Dates: start: 20130809
  7. BASSAMIN [Concomitant]
     Active Substance: ASPIRIN\DIHYDROXYALUMINUM AMINOACETATE\MAGNESIUM CARBONATE
     Route: 048
     Dates: start: 20130809
  8. MAGMITT [Concomitant]
     Active Substance: MAGNESIUM OXIDE
     Route: 048
     Dates: start: 20140131
  9. PARIET [Concomitant]
     Active Substance: RABEPRAZOLE SODIUM
     Route: 048
     Dates: start: 20130809
  10. BASEN [Concomitant]
     Active Substance: VOGLIBOSE
     Indication: TYPE 2 DIABETES MELLITUS
     Route: 048
     Dates: start: 20140313
  11. NESINA [Concomitant]
     Active Substance: ALOGLIPTIN BENZOATE
     Indication: TYPE 2 DIABETES MELLITUS
     Route: 048
     Dates: start: 20130809, end: 20140313
  12. FEBURIC [Concomitant]
     Active Substance: FEBUXOSTAT
     Route: 048
     Dates: start: 20130809

REACTIONS (1)
  - Enteritis infectious [Recovered/Resolved]

NARRATIVE: CASE EVENT DATE: 20150403
